FAERS Safety Report 6782158-2 (Version None)
Quarter: 2010Q2

REPORT INFORMATION
  Report Type: 
  Country: None (occurrence: None)
  Receive Date: 20100621
  Receipt Date: 20100611
  Transmission Date: 20101027
  Serious: Yes (Hospitalization)
  Sender: FDA-Public Use
  Company Number: JP-JNJFOC-20100604939

PATIENT
  Sex: Female
  Weight: 50 kg

DRUGS (2)
  1. REMICADE [Suspect]
     Indication: RHEUMATOID ARTHRITIS
     Route: 042
  2. REMICADE [Suspect]
     Dosage: 4 INFUSIONS ON UNSPECIFIED DATES
     Route: 042

REACTIONS (1)
  - GLOMERULONEPHRITIS RAPIDLY PROGRESSIVE [None]
